FAERS Safety Report 7916939-6 (Version None)
Quarter: 2011Q4

REPORT INFORMATION
  Report Type: 
  Country: None (occurrence: None)
  Receive Date: 20111114
  Receipt Date: 20111103
  Transmission Date: 20120403
  Serious: Yes (Other)
  Sender: FDA-Public Use
  Company Number: NL-GDP-11412275

PATIENT
  Sex: Female
  Weight: 73 kg

DRUGS (3)
  1. METVIXIA [Suspect]
     Indication: BASAL CELL CARCINOMA
     Dosage: (PATIENT TREATED FOR SEVERAL LESIONS (AKTINIC KERATOSIS AND BASAL CELL CARCINOMA) TOPICAL)
     Route: 061
     Dates: start: 20101220, end: 20101220
  2. METVIXIA [Suspect]
     Indication: ACTINIC KERATOSIS
     Dosage: (PATIENT TREATED FOR SEVERAL LESIONS (AKTINIC KERATOSIS AND BASAL CELL CARCINOMA) TOPICAL)
     Route: 061
     Dates: start: 20101220, end: 20101220
  3. SERETIDE /01420901/ [Concomitant]

REACTIONS (3)
  - SKIN TEST POSITIVE [None]
  - APPLICATION SITE VESICLES [None]
  - DRUG HYPERSENSITIVITY [None]
